FAERS Safety Report 22611234 (Version 2)
Quarter: 2023Q2

REPORT INFORMATION
  Report Type: Spontaneous
  Country: US (occurrence: US)
  Receive Date: 20230616
  Receipt Date: 20230620
  Transmission Date: 20230722
  Serious: Yes (Death, Hospitalization)
  Sender: FDA-Public Use
  Company Number: US-BEIGENE-BGN-2023-005756

PATIENT

DRUGS (1)
  1. BRUKINSA [Suspect]
     Active Substance: ZANUBRUTINIB
     Indication: Chronic lymphocytic leukaemia
     Dosage: UNK, BID
     Route: 048
     Dates: start: 202304

REACTIONS (14)
  - Metastatic neoplasm [Fatal]
  - Cerebrovascular accident [Unknown]
  - Trismus [Unknown]
  - Cardiac murmur [Unknown]
  - Dehydration [Unknown]
  - Diarrhoea [Unknown]
  - Pain [Unknown]
  - Swelling face [Unknown]
  - Vomiting [Unknown]
  - Hepatic mass [Unknown]
  - Abdominal pain upper [Unknown]
  - Gout [Unknown]
  - Blood uric acid increased [Unknown]
  - Drug ineffective [Unknown]

NARRATIVE: CASE EVENT DATE: 20230401
